FAERS Safety Report 7251374-8 (Version None)
Quarter: 2011Q1

REPORT INFORMATION
  Report Type: 
  Country: None (occurrence: None)
  Receive Date: 20110128
  Receipt Date: 20110124
  Transmission Date: 20110831
  Serious: Yes (Other)
  Sender: FDA-Public Use
  Company Number: US-PFIZER INC-2011017194

PATIENT
  Sex: Female

DRUGS (1)
  1. TOVIAZ [Suspect]
     Indication: HYPERTONIC BLADDER
     Dosage: 4 MG, 2X/DAY
     Route: 048

REACTIONS (5)
  - MUSCLE SPASMS [None]
  - FLUID RETENTION [None]
  - DYSURIA [None]
  - SINUSITIS [None]
  - URINARY INCONTINENCE [None]
